FAERS Safety Report 21947517 (Version 1)
Quarter: 2023Q1

REPORT INFORMATION
  Report Type: Spontaneous
  Country: IN (occurrence: IN)
  Receive Date: 20230202
  Receipt Date: 20230202
  Transmission Date: 20230418
  Serious: Yes (Other)
  Sender: FDA-Public Use
  Company Number: IN-SUN PHARMACEUTICAL INDUSTRIES LTD-2023R1-376270

PATIENT
  Age: 69 Year

DRUGS (6)
  1. NOREPINEPHRINE [Suspect]
     Active Substance: NOREPINEPHRINE
     Indication: Hypertension
     Dosage: UNK
     Route: 065
  2. NOREPINEPHRINE [Suspect]
     Active Substance: NOREPINEPHRINE
     Indication: Cerebral vasoconstriction
  3. MILRINONE [Suspect]
     Active Substance: MILRINONE
     Indication: Hypertension
     Dosage: UNK
     Route: 065
  4. MILRINONE [Suspect]
     Active Substance: MILRINONE
     Indication: Cerebral vasoconstriction
  5. NIMODIPINE [Suspect]
     Active Substance: NIMODIPINE
     Indication: Hypertension
     Dosage: UNK
     Route: 013
  6. NIMODIPINE [Suspect]
     Active Substance: NIMODIPINE
     Indication: Cerebral vasoconstriction

REACTIONS (1)
  - Posterior reversible encephalopathy syndrome [Unknown]
